APPROVED DRUG PRODUCT: FUROSEMIDE
Active Ingredient: FUROSEMIDE
Strength: 10MG/ML
Dosage Form/Route: INJECTABLE;INJECTION
Application: A215856 | Product #001 | TE Code: AP
Applicant: SABA ILAC SANAYIVE TICARET AS
Approved: Apr 2, 2024 | RLD: No | RS: No | Type: RX